FAERS Safety Report 22938881 (Version 2)
Quarter: 2023Q4

REPORT INFORMATION
  Report Type: Spontaneous
  Country: US (occurrence: US)
  Receive Date: 20230913
  Receipt Date: 20231009
  Transmission Date: 20240110
  Serious: No
  Sender: FDA-Public Use
  Company Number: US-ELI_LILLY_AND_COMPANY-US202309007117

PATIENT
  Age: 65 Year
  Sex: Female

DRUGS (4)
  1. FORTEO [Suspect]
     Active Substance: TERIPARATIDE
     Indication: Osteoporosis
     Dosage: UNK, UNKNOWN
     Route: 058
  2. FORTEO [Suspect]
     Active Substance: TERIPARATIDE
     Indication: Osteoporosis
     Dosage: UNK, UNKNOWN
     Route: 058
  3. FORTEO [Suspect]
     Active Substance: TERIPARATIDE
     Dosage: UNK, UNKNOWN
     Route: 065
  4. FORTEO [Suspect]
     Active Substance: TERIPARATIDE
     Dosage: UNK, UNKNOWN
     Route: 065

REACTIONS (14)
  - Feeling abnormal [Recovered/Resolved]
  - Vertigo [Recovering/Resolving]
  - Dizziness [Recovering/Resolving]
  - Hypertension [Recovered/Resolved]
  - Visual impairment [Recovered/Resolved]
  - Hypokinesia [Unknown]
  - Ocular discomfort [Recovered/Resolved]
  - Mobility decreased [Recovered/Resolved]
  - Headache [Unknown]
  - Head discomfort [Recovered/Resolved]
  - Limb discomfort [Recovered/Resolved]
  - Pain in extremity [Unknown]
  - Asthenia [Recovered/Resolved]
  - Nausea [Unknown]

NARRATIVE: CASE EVENT DATE: 20230907
